FAERS Safety Report 9122360 (Version 1)
Quarter: 2013Q1

REPORT INFORMATION
  Report Type: Spontaneous
  Country: RS (occurrence: RS)
  Receive Date: 20130114
  Receipt Date: 20130114
  Transmission Date: 20140127
  Serious: Yes (Other)
  Sender: FDA-Public Use
  Company Number: RS-009507513-1301SRB004205

PATIENT
  Age: 56 Year
  Sex: Female

DRUGS (4)
  1. FOSAVANCE [Suspect]
     Indication: OSTEOPOROSIS
     Dosage: UNK, QW
     Route: 048
     Dates: start: 20120301, end: 20120430
  2. FOSAVANCE [Suspect]
     Dosage: UNK, QW
     Route: 048
     Dates: start: 20120706, end: 20120801
  3. AMPRIL HL [Concomitant]
     Indication: HYPERTENSION
     Dosage: TOTAL DAILY DOSE: 2.5MG+12.5MG
     Route: 048
  4. RIVOTRIL [Concomitant]
     Indication: DEPRESSION
     Dosage: 2MG, 2X0.5

REACTIONS (3)
  - Hyperaemia [Recovered/Resolved]
  - Dysphonia [Recovered/Resolved]
  - Throat tightness [Recovered/Resolved]
